FAERS Safety Report 7898183-4 (Version None)
Quarter: 2011Q4

REPORT INFORMATION
  Report Type: 
  Country: None (occurrence: None)
  Receive Date: 20111107
  Receipt Date: 20111026
  Transmission Date: 20120403
  Serious: Yes (Hospitalization)
  Sender: FDA-Public Use
  Company Number: US-GLAXOSMITHKLINE-A0797184A

PATIENT
  Age: 56 Year
  Sex: Female
  Weight: 86.4 kg

DRUGS (6)
  1. LANTUS [Concomitant]
  2. LEXAPRO [Concomitant]
  3. AVANDIA [Suspect]
     Indication: DIABETES MELLITUS
     Dosage: 4MG FOUR TIMES PER DAY
     Route: 048
  4. METOPROLOL [Concomitant]
  5. CADUET [Concomitant]
  6. LOVAZA [Concomitant]

REACTIONS (3)
  - CARDIAC DISORDER [None]
  - ATRIAL FIBRILLATION [None]
  - FLUID OVERLOAD [None]
